FAERS Safety Report 12997809 (Version 1)
Quarter: 2016Q4

REPORT INFORMATION
  Report Type: Report from Study
  Country: DE (occurrence: DE)
  Receive Date: 20161205
  Receipt Date: 20161205
  Transmission Date: 20170207
  Serious: Yes (Other)
  Sender: FDA-Public Use
  Company Number: PHHO2008DE11514

PATIENT

DRUGS (4)
  1. VITAMIN D [Concomitant]
     Active Substance: CHOLECALCIFEROL
  2. HERCEPTIN [Concomitant]
     Active Substance: TRASTUZUMAB
  3. ZOLEDRONATE [Suspect]
     Active Substance: ZOLEDRONIC ACID
     Indication: BREAST CANCER
     Dosage: 4 MG, Q3MO
     Route: 042
     Dates: start: 20080429, end: 200810
  4. CALCIUM [Concomitant]
     Active Substance: CALCIUM

REACTIONS (10)
  - Gingivitis [Recovered/Resolved]
  - Swelling [Recovered/Resolved]
  - Osteonecrosis of jaw [Recovered/Resolved]
  - Pain [Recovered/Resolved]
  - Impaired healing [Recovered/Resolved]
  - Fistula [Recovered/Resolved]
  - Erythema [Recovered/Resolved]
  - Bone lesion [Recovered/Resolved]
  - Bone disorder [Recovered/Resolved]
  - Peptostreptococcus infection [Recovered/Resolved]

NARRATIVE: CASE EVENT DATE: 20080925
